FAERS Safety Report 6806969-X (Version None)
Quarter: 2010Q2

REPORT INFORMATION
  Report Type: 
  Country: None (occurrence: None)
  Receive Date: 20100629
  Receipt Date: 20080730
  Transmission Date: 20101027
  Serious: No
  Sender: FDA-Public Use
  Company Number: US-PFIZER INC-2008047208

PATIENT
  Sex: Male
  Weight: 108.86 kg

DRUGS (2)
  1. ZYVOX [Suspect]
     Indication: DIABETIC FOOT INFECTION
     Route: 048
     Dates: start: 20060101
  2. GLIPIZIDE [Concomitant]
     Indication: TYPE 2 DIABETES MELLITUS

REACTIONS (2)
  - DIZZINESS [None]
  - DRUG ADMINISTRATION ERROR [None]
